FAERS Safety Report 9448279 (Version 1)
Quarter: 2013Q3

REPORT INFORMATION
  Report Type: Spontaneous
  Country: US (occurrence: US)
  Receive Date: 20130808
  Receipt Date: 20130808
  Transmission Date: 20140515
  Serious: Yes (Hospitalization, Other)
  Sender: FDA-Public Use
  Company Number: US-PFIZER INC-2013217140

PATIENT
  Age: 16 Year
  Sex: Female

DRUGS (1)
  1. DILANTIN-125 [Suspect]
     Indication: CONVULSION
     Dosage: 100 MG, 3X/DAY
     Route: 048
     Dates: start: 20071202, end: 2008

REACTIONS (2)
  - Stevens-Johnson syndrome [Recovering/Resolving]
  - Toxic epidermal necrolysis [Recovering/Resolving]
